FAERS Safety Report 25697853 (Version 1)
Quarter: 2025Q3

REPORT INFORMATION
  Report Type: Spontaneous
  Country: US (occurrence: US)
  Receive Date: 20250819
  Receipt Date: 20250819
  Transmission Date: 20251020
  Serious: Yes (Death, Other)
  Sender: AMGEN
  Company Number: US-AMGEN-USASP2025162531

PATIENT

DRUGS (7)
  1. RITUXIMAB [Suspect]
     Active Substance: RITUXIMAB
     Indication: B-cell type acute leukaemia
     Dosage: UNK UNK, Q2WK (FOR UP TO CYCLE 8)
     Route: 065
  2. PREDNISONE [Suspect]
     Active Substance: PREDNISONE
     Indication: B-cell type acute leukaemia
     Dosage: UNK UNK, Q2WK (FOR UP TO CYCLE 8)
     Route: 065
  3. ETOPOSIDE [Concomitant]
     Active Substance: ETOPOSIDE
     Indication: B-cell type acute leukaemia
     Dosage: UNK UNK, Q2WK (FOR UP TO CYCLE 8)
     Route: 065
  4. VINCRISTINE [Concomitant]
     Active Substance: VINCRISTINE
     Indication: B-cell type acute leukaemia
     Dosage: UNK UNK, Q2WK (FOR UP TO CYCLE 8)
     Route: 065
  5. CYCLOPHOSPHAMIDE [Concomitant]
     Active Substance: CYCLOPHOSPHAMIDE
     Indication: B-cell type acute leukaemia
     Dosage: UNK UNK, Q2WK (FOR UP TO CYCLE 8)
     Route: 065
  6. DOXORUBICIN [Concomitant]
     Active Substance: DOXORUBICIN
     Indication: B-cell type acute leukaemia
     Dosage: UNK UNK, Q2WK (FOR UP TO CYCLE 8)
     Route: 065
  7. TAFASITAMAB [Concomitant]
     Active Substance: TAFASITAMAB
     Indication: B-cell type acute leukaemia
     Route: 040

REACTIONS (9)
  - Acute lymphocytic leukaemia [Fatal]
  - Death [Fatal]
  - Syncope [Unknown]
  - Febrile neutropenia [Unknown]
  - Sepsis [Unknown]
  - Haemorrhage intracranial [Unknown]
  - Blood fibrinogen decreased [Unknown]
  - Infection [Unknown]
  - Hypotension [Unknown]
